APPROVED DRUG PRODUCT: TOPOTECAN HYDROCHLORIDE
Active Ingredient: TOPOTECAN HYDROCHLORIDE
Strength: EQ 1MG BASE/ML (EQ 1MG BASE/ML)
Dosage Form/Route: SOLUTION;INTRAVENOUS
Application: A204406 | Product #001
Applicant: ACCORD HEALTHCARE INC
Approved: Jul 6, 2017 | RLD: No | RS: No | Type: RX